FAERS Safety Report 7087247-3 (Version None)
Quarter: 2010Q4

REPORT INFORMATION
  Report Type: 
  Country: None (occurrence: None)
  Receive Date: 20101107
  Receipt Date: 20090903
  Transmission Date: 20110411
  Serious: Yes (Other)
  Sender: FDA-Public Use
  Company Number: PHHY2009US66504

PATIENT
  Sex: Female

DRUGS (2)
  1. EXJADE [Suspect]
     Dosage: 250 MG, QD
     Route: 048
     Dates: start: 20090601
  2. EXJADE [Suspect]
     Dosage: 375 MG, QD
     Route: 048

REACTIONS (2)
  - CLOSTRIDIAL INFECTION [None]
  - CONSTIPATION [None]
